FAERS Safety Report 8103398-6 (Version None)
Quarter: 2012Q1

REPORT INFORMATION
  Report Type: 
  Country: None (occurrence: None)
  Receive Date: 20120127
  Receipt Date: 20120118
  Transmission Date: 20120608
  Serious: Yes (Other)
  Sender: FDA-Public Use
  Company Number: 2012SP003587

PATIENT
  Age: 57 Year
  Sex: Male

DRUGS (7)
  1. VALIUM [Concomitant]
  2. GABAPENTIN [Suspect]
     Indication: PRODUCT USED FOR UNKNOWN INDICATION
  3. MORPHINE [Concomitant]
  4. ADVAIR DISKUS 100/50 [Concomitant]
  5. DEXILANT [Concomitant]
  6. REMERON [Suspect]
     Indication: PRODUCT USED FOR UNKNOWN INDICATION
  7. BYSTOLIC [Suspect]
     Indication: HYPERTENSION
     Dosage: 20 MG; QD; PO
     Route: 048
     Dates: start: 20110401, end: 20120102

REACTIONS (1)
  - HYPERSENSITIVITY [None]
